FAERS Safety Report 8969815 (Version 1)
Quarter: 2012Q4

REPORT INFORMATION
  Report Type: 
  Country: DE (occurrence: DE)
  Receive Date: 20121218
  Receipt Date: 20121218
  Transmission Date: 20130627
  Serious: Yes (Death)
  Sender: FDA-Public Use
  Company Number: DE-BAYER-2012-131916

PATIENT
  Age: 76 Year
  Sex: Male

DRUGS (13)
  1. ACETYLSALICYLIC ACID (} 100 MG) [Suspect]
     Indication: RHEUMATOID ARTHRITIS
     Dosage: UNK
     Route: 048
     Dates: start: 195007
  2. CORTICOSTEROIDS [Interacting]
     Indication: RHEUMATOID ARTHRITIS
     Dosage: 50 mg, QD
     Route: 048
     Dates: start: 195007
  3. CORTICOSTEROIDS [Interacting]
     Indication: RHEUMATOID ARTHRITIS
     Dosage: 35 mg, QD
     Route: 048
     Dates: start: 1953
  4. ACTH [Concomitant]
     Indication: RHEUMATOID ARTHRITIS
     Dosage: UNK
     Route: 030
     Dates: start: 1950
  5. CORTISONE ACETATE [Concomitant]
     Indication: RHEUMATOID ARTHRITIS
     Dosage: UNK UNK, QD
     Route: 030
     Dates: start: 1950
  6. POTASSIUM CHLORIDE [Concomitant]
  7. TESTOSTERONE PROPIONATE [Concomitant]
     Dosage: UNK UNK, Q2WK
     Route: 030
  8. VITAMIN D [Concomitant]
     Indication: OSTEOPOROSIS
  9. ESTROGEN [Concomitant]
  10. STRONTIUM LACTATE [Concomitant]
  11. ASCORBIC ACID [Concomitant]
     Indication: GINGIVITIS
     Dosage: UNK
     Dates: start: 1950, end: 1950
  12. CHLORTETRACYCLINE [Concomitant]
     Indication: GINGIVITIS
     Dosage: UNK
     Dates: start: 1950, end: 1950
  13. POTASSIUM PERMANGANATE [Concomitant]
     Indication: GINGIVITIS
     Dosage: UNK
     Dates: start: 1950, end: 1950

REACTIONS (6)
  - Intestinal haemorrhage [Fatal]
  - Gastrointestinal disorder [None]
  - Gingivitis [None]
  - Fluid retention [None]
  - Osteoporosis [None]
  - Condition aggravated [None]
